FAERS Safety Report 5713235-2 (Version None)
Quarter: 2008Q2

REPORT INFORMATION
  Report Type: 
  Country: None (occurrence: None)
  Receive Date: 20080422
  Receipt Date: 19990618
  Transmission Date: 20081010
  Serious: Yes (Death, Life-Threatening, Hospitalization)
  Sender: FDA-Public Use
  Company Number: AU-ROCHE-201751

PATIENT
  Sex: Female
  Weight: 105.3 kg

DRUGS (10)
  1. CAPECITABINE [Suspect]
     Dosage: THE STUDY MEDICATION IS TO ADMINISTERED FOR 14 DAYS WITH 7 DAYS REST.
     Route: 048
     Dates: start: 19990210, end: 19990615
  2. ZANTAC [Concomitant]
     Route: 048
     Dates: start: 19981229, end: 19990617
  3. DEXAMETHASONE TAB [Concomitant]
     Route: 048
     Dates: start: 19981229, end: 19990617
  4. AMITRIPTYLINE HCL [Concomitant]
     Route: 048
     Dates: start: 19981229
  5. COLOXYL [Concomitant]
     Route: 048
     Dates: start: 19990119
  6. COLOXYL [Concomitant]
     Route: 048
     Dates: start: 19990119
  7. COLOXYL [Concomitant]
     Route: 048
     Dates: start: 19990119
  8. VALIUM [Concomitant]
     Route: 048
     Dates: start: 19981110, end: 19990617
  9. LASIX [Concomitant]
     Route: 048
     Dates: start: 19990518, end: 19990617
  10. WARFARIN SODIUM [Concomitant]
     Route: 048
     Dates: start: 19990303, end: 19990617

REACTIONS (6)
  - DEATH [None]
  - MUCOSAL INFLAMMATION [None]
  - OESOPHAGEAL CANDIDIASIS [None]
  - ORAL CANDIDIASIS [None]
  - PULMONARY EMBOLISM [None]
  - SUDDEN DEATH [None]
